FAERS Safety Report 6084002-8 (Version None)
Quarter: 2009Q1

REPORT INFORMATION
  Report Type: 
  Country: None (occurrence: None)
  Receive Date: 20090217
  Receipt Date: 20090217
  Transmission Date: 20090719
  Serious: Yes (Hospitalization)
  Sender: FDA-Public Use
  Company Number: None

PATIENT
  Sex: Male
  Weight: 94 kg

DRUGS (3)
  1. FLUOROURACIL [Suspect]
     Dosage: 5832 MG
     Dates: end: 20090209
  2. LEUCOVORIN CALCIUM [Suspect]
     Dosage: 836 MG
     Dates: end: 20090209
  3. ELOXATIN [Suspect]
     Dosage: 178 MG
     Dates: end: 20090209

REACTIONS (3)
  - CATHETERISATION CARDIAC ABNORMAL [None]
  - MYOCARDIAL INFARCTION [None]
  - MYOCARDIAL ISCHAEMIA [None]
